APPROVED DRUG PRODUCT: DILTIAZEM HYDROCHLORIDE
Active Ingredient: DILTIAZEM HYDROCHLORIDE
Strength: 360MG
Dosage Form/Route: CAPSULE, EXTENDED RELEASE;ORAL
Application: A091022 | Product #005 | TE Code: AB4
Applicant: CHARTWELL RX SCIENCES LLC
Approved: Sep 28, 2012 | RLD: No | RS: No | Type: RX